FAERS Safety Report 7267666-2 (Version None)
Quarter: 2011Q1

REPORT INFORMATION
  Report Type: 
  Country: None (occurrence: None)
  Receive Date: 20110201
  Receipt Date: 20110117
  Transmission Date: 20110831
  Serious: Yes (Hospitalization)
  Sender: FDA-Public Use
  Company Number: JP-ROCHE-733323

PATIENT
  Sex: Male
  Weight: 59 kg

DRUGS (7)
  1. TOCILIZUMAB [Suspect]
     Indication: RHEUMATOID ARTHRITIS
     Dosage: DOSE FORM REPORTED AS INTRAVENOUS
     Route: 058
     Dates: start: 20100716
  2. CELCOX [Concomitant]
     Route: 048
     Dates: start: 20100716
  3. VOGLIBOSE [Concomitant]
     Route: 048
     Dates: start: 20100323
  4. VOLTAREN [Concomitant]
     Route: 054
     Dates: start: 20101005
  5. AMARYL [Concomitant]
     Route: 048
     Dates: start: 20100625
  6. TOCILIZUMAB [Suspect]
     Dosage: DOSE FORM : SUBCUTANEOUS. EMERGENCY CODE BREAK : MRA SC
     Route: 058
     Dates: end: 20100922
  7. CYTOTEC [Concomitant]
     Route: 048
     Dates: start: 20100623

REACTIONS (1)
  - NEOPLASM [None]
